FAERS Safety Report 4698924-3 (Version None)
Quarter: 2005Q2

REPORT INFORMATION
  Report Type: 
  Country: None (occurrence: None)
  Receive Date: 20050624
  Receipt Date: 20050610
  Transmission Date: 20051028
  Serious: Yes (Other)
  Sender: FDA-Public Use
  Company Number: SE-JNJFOC-20050600131

PATIENT
  Age: 59 Year
  Sex: Female

DRUGS (3)
  1. REMICADE [Suspect]
     Indication: RHEUMATOID ARTHRITIS
     Dosage: 14 INFUSIONS RECEIVED.
     Route: 042
  2. VOLTAREN [Concomitant]
     Route: 065
  3. LOSEC [Concomitant]
     Route: 065

REACTIONS (4)
  - EPISTAXIS [None]
  - HYPERTENSION [None]
  - PALPITATIONS [None]
  - TINNITUS [None]
